FAERS Safety Report 11622713 (Version 1)
Quarter: 2015Q4

REPORT INFORMATION
  Report Type: Spontaneous
  Country: US (occurrence: US)
  Receive Date: 20151013
  Receipt Date: 20151013
  Transmission Date: 20160304
  Serious: No
  Sender: FDA-Public Use
  Company Number: US-JNJFOC-20150907464

PATIENT
  Sex: Female

DRUGS (2)
  1. TYLENOL EXTRA STRENGTH [Suspect]
     Active Substance: ACETAMINOPHEN
     Indication: OSTEOCHONDRITIS
     Dosage: 1-3 CAPLETS DAILY FOR YEARS, SOMETIMES TAKE TWO.
     Route: 048
  2. TYLENOL EXTRA STRENGTH [Suspect]
     Active Substance: ACETAMINOPHEN
     Indication: FIBROMYALGIA
     Dosage: 1-3 CAPLETS DAILY FOR YEARS, SOMETIMES TAKE TWO.
     Route: 048

REACTIONS (1)
  - Product use issue [Unknown]
